FAERS Safety Report 12379003 (Version 1)
Quarter: 2016Q2

REPORT INFORMATION
  Report Type: Spontaneous
  Country: US (occurrence: US)
  Receive Date: 20160517
  Receipt Date: 20160517
  Transmission Date: 20160815
  Serious: Yes (Other)
  Sender: FDA-Public Use
  Company Number: US-SA-2016SA094966

PATIENT
  Age: 42 Year
  Sex: Female

DRUGS (10)
  1. AUBAGIO [Suspect]
     Active Substance: TERIFLUNOMIDE
     Indication: MULTIPLE SCLEROSIS
     Route: 048
  2. AMPYRA [Concomitant]
     Active Substance: DALFAMPRIDINE
  3. XANAX [Concomitant]
     Active Substance: ALPRAZOLAM
  4. LAMICTAL [Concomitant]
     Active Substance: LAMOTRIGINE
  5. ZOLOFT [Concomitant]
     Active Substance: SERTRALINE HYDROCHLORIDE
  6. DECADRON [Concomitant]
     Active Substance: DEXAMETHASONE
  7. ZANAFLEX [Concomitant]
     Active Substance: TIZANIDINE HYDROCHLORIDE
  8. MAXALT [Concomitant]
     Active Substance: RIZATRIPTAN BENZOATE
  9. ADVIL [Concomitant]
     Active Substance: IBUPROFEN
  10. TOPAMAX [Concomitant]
     Active Substance: TOPIRAMATE

REACTIONS (3)
  - Urinary tract infection [Unknown]
  - Headache [Unknown]
  - Menstruation delayed [Unknown]
